FAERS Safety Report 9270885 (Version 1)
Quarter: 2013Q2

REPORT INFORMATION
  Report Type: Spontaneous
  Country: US (occurrence: US)
  Receive Date: 20130506
  Receipt Date: 20130506
  Transmission Date: 20140414
  Serious: No
  Sender: FDA-Public Use
  Company Number: US-B.I. PHARMACEUTICALS,INC./RIDGEFIELD-2011-BP-05871BP

PATIENT
  Age: 72 Year
  Sex: Male

DRUGS (9)
  1. PRADAXA [Suspect]
     Indication: ATRIAL FIBRILLATION
     Dosage: 300 MG
     Route: 048
     Dates: start: 201102
  2. METOPROLOL [Concomitant]
     Indication: ATRIAL FIBRILLATION
     Dates: start: 201102
  3. INSULIN [Concomitant]
     Indication: DIABETES MELLITUS
  4. KLONOPIN [Concomitant]
     Indication: RESTLESS LEGS SYNDROME
  5. OMEPRAZOLE [Concomitant]
     Indication: GASTROOESOPHAGEAL REFLUX DISEASE
  6. ZOCOR [Concomitant]
     Indication: BLOOD CHOLESTEROL INCREASED
  7. FOSAMAX [Concomitant]
     Indication: OSTEOPOROSIS
  8. VITAMINS [Concomitant]
     Indication: PROPHYLAXIS
  9. FISH OIL [Concomitant]
     Indication: PROPHYLAXIS

REACTIONS (2)
  - Vessel puncture site bruise [Not Recovered/Not Resolved]
  - Oral disorder [Not Recovered/Not Resolved]
